FAERS Safety Report 20921086 (Version 1)
Quarter: 2022Q2

REPORT INFORMATION
  Report Type: Spontaneous
  Country: US (occurrence: US)
  Receive Date: 20220606
  Receipt Date: 20220606
  Transmission Date: 20220721
  Serious: No
  Sender: FDA-Public Use
  Company Number: US-BAUSCH-BL-2022-013394

PATIENT
  Age: 82 Year
  Sex: Male
  Weight: 60.382 kg

DRUGS (1)
  1. JUBLIA [Suspect]
     Active Substance: EFINACONAZOLE
     Indication: Product used for unknown indication
     Route: 061

REACTIONS (3)
  - Eye irritation [Unknown]
  - Accidental exposure to product [Unknown]
  - Incorrect route of product administration [Unknown]
